FAERS Safety Report 23454532 (Version 2)
Quarter: 2024Q2

REPORT INFORMATION
  Report Type: Spontaneous
  Country: US (occurrence: US)
  Receive Date: 20240130
  Receipt Date: 20240411
  Transmission Date: 20240716
  Serious: Yes (Disabling, Other)
  Sender: FDA-Public Use
  Company Number: US-HORIZON THERAPEUTICS-HZN-2024-000977

PATIENT

DRUGS (16)
  1. TEPEZZA [Suspect]
     Active Substance: TEPROTUMUMAB-TRBW
     Indication: Endocrine ophthalmopathy
     Dosage: 1ST INFUSION
     Route: 042
     Dates: start: 20220128
  2. TEPEZZA [Suspect]
     Active Substance: TEPROTUMUMAB-TRBW
     Dosage: 1954 MG, EVERY 3 WEEKS, FOURTH INFUSION
     Route: 042
     Dates: start: 20221010
  3. TEPEZZA [Suspect]
     Active Substance: TEPROTUMUMAB-TRBW
     Dosage: 1954 MG, EVERY 3 WEEKS, FIFTH INFUSION
     Route: 042
     Dates: start: 20221105
  4. TEPEZZA [Suspect]
     Active Substance: TEPROTUMUMAB-TRBW
     Dosage: 8TH INFUSION
     Route: 042
     Dates: start: 20221110
  5. GENTEAL TEARS [Concomitant]
     Active Substance: DEXTRAN 70\HYPROMELLOSE 2910 (4000 MPA.S)
     Dosage: 0.1-0.2-0.3% SOLUTION 1 DROP
     Route: 047
  6. MEDROL [Concomitant]
     Active Substance: METHYLPREDNISOLONE
     Dosage: 6 TABLETS ON DAY 1, DECREASING BY 1 TABLET LESS EACH DAY UNTIL FINISHED ORALLY
     Route: 048
  7. LOTEMAX [Concomitant]
     Active Substance: LOTEPREDNOL ETABONATE
     Dosage: UNK UNK, BID
     Route: 047
  8. LEVOTHYROXINE [Concomitant]
     Active Substance: LEVOTHYROXINE\LEVOTHYROXINE SODIUM
  9. CANDESARTAN CILEXETIL [Concomitant]
     Active Substance: CANDESARTAN CILEXETIL
  10. VALIUM [Concomitant]
     Active Substance: DIAZEPAM
     Dosage: 10 MG, QD
     Route: 048
  11. PANTOPRAZOLE SODIUM [Concomitant]
     Active Substance: PANTOPRAZOLE SODIUM
     Dosage: 40 MG, QD
     Route: 048
  12. PREDNISONE [Concomitant]
     Active Substance: PREDNISONE
     Dosage: 10 MG, QD
     Route: 048
  13. PRED FORTE [Concomitant]
     Active Substance: PREDNISOLONE ACETATE
     Dosage: 1 DROP INTO BOTH EYES
     Route: 047
  14. SYNTHROID [Concomitant]
     Active Substance: LEVOTHYROXINE SODIUM
     Dosage: 37 MG, QD
     Route: 065
  15. INFLUENZA VIRUS VACCINE [Concomitant]
     Active Substance: INFLUENZA VIRUS VACCINE
  16. ZOFRAN [Concomitant]
     Active Substance: ONDANSETRON HYDROCHLORIDE
     Dosage: 4 MG, EVERY 8 HOURS PRN
     Route: 048

REACTIONS (28)
  - Deafness [Unknown]
  - Disability [Unknown]
  - Physical disability [Not Recovered/Not Resolved]
  - Emotional distress [Unknown]
  - Condition aggravated [Unknown]
  - Anxiety [Unknown]
  - Discomfort [Unknown]
  - Impaired quality of life [Unknown]
  - Pain [Not Recovered/Not Resolved]
  - Injury [Not Recovered/Not Resolved]
  - Eye irritation [Not Recovered/Not Resolved]
  - Peripheral swelling [Not Recovered/Not Resolved]
  - Eye pain [Not Recovered/Not Resolved]
  - Vision blurred [Not Recovered/Not Resolved]
  - Periorbital swelling [Not Recovered/Not Resolved]
  - Blood pressure increased [Unknown]
  - Product quality issue [Unknown]
  - Abdominal pain upper [Unknown]
  - Decreased appetite [Unknown]
  - Dizziness [Unknown]
  - Nausea [Unknown]
  - Tinnitus [Unknown]
  - Diplopia [Not Recovered/Not Resolved]
  - Photophobia [Not Recovered/Not Resolved]
  - Strabismus [Unknown]
  - Economic problem [Unknown]
  - Lacrimation increased [Not Recovered/Not Resolved]
  - Product use in unapproved therapeutic environment [Unknown]

NARRATIVE: CASE EVENT DATE: 20221201
